FAERS Safety Report 8238482-X (Version None)
Quarter: 2012Q1

REPORT INFORMATION
  Report Type: 
  Country: None (occurrence: None)
  Receive Date: 20120327
  Receipt Date: 20120321
  Transmission Date: 20120608
  Serious: Yes (Other)
  Sender: FDA-Public Use
  Company Number: US-PFIZER INC-2012073993

PATIENT
  Sex: Female
  Weight: 93.88 kg

DRUGS (6)
  1. METFORMIN [Concomitant]
     Dosage: UNK
  2. CYMBALTA [Concomitant]
     Indication: FIBROMYALGIA
     Dosage: UNK
  3. VALIUM [Concomitant]
     Dosage: UNK, 2X/DAY
  4. LISINOPRIL [Concomitant]
     Indication: HYPERTENSION
     Dosage: 20 MG
  5. LYRICA [Suspect]
     Indication: FIBROMYALGIA
     Dosage: 50 MG, 1X/DAY
     Route: 048
     Dates: start: 20100201, end: 20120126
  6. NIFEDIPINE [Concomitant]
     Indication: HYPERTENSION
     Dosage: 30 MG

REACTIONS (3)
  - RENAL PAIN [None]
  - BACK PAIN [None]
  - DRUG EFFECT DECREASED [None]
